FAERS Safety Report 19215771 (Version 1)
Quarter: 2021Q2

REPORT INFORMATION
  Report Type: Spontaneous
  Country: US (occurrence: US)
  Receive Date: 20210504
  Receipt Date: 20210504
  Transmission Date: 20210717
  Serious: Yes (Other)
  Sender: FDA-Public Use
  Company Number: None

PATIENT
  Age: 53 Year
  Sex: Male
  Weight: 179.8 kg

DRUGS (2)
  1. CIALIS (GENERIC) 20MG [Suspect]
     Active Substance: TADALAFIL
     Indication: ERECTILE DYSFUNCTION
     Dosage: ?          OTHER DOSE:12/30 DAYS ;?
     Route: 048
  2. SILDENAFIL. [Concomitant]
     Active Substance: SILDENAFIL

REACTIONS (4)
  - Nausea [None]
  - Headache [None]
  - Abdominal discomfort [None]
  - Treatment failure [None]

NARRATIVE: CASE EVENT DATE: 20210408
